FAERS Safety Report 10058119 (Version 2)
Quarter: 2014Q2

REPORT INFORMATION
  Report Type: Spontaneous
  Country: US (occurrence: US)
  Receive Date: 20140404
  Receipt Date: 20140424
  Transmission Date: 20141212
  Serious: Yes (Other)
  Sender: FDA-Public Use
  Company Number: US-PFIZER INC-2014093166

PATIENT
  Sex: Female

DRUGS (1)
  1. CALAN SR [Suspect]
     Indication: HYPERTENSION
     Dosage: UNK
     Dates: start: 1989

REACTIONS (3)
  - Cardiac failure [Unknown]
  - Arrhythmia [Unknown]
  - Gait disturbance [Unknown]
